FAERS Safety Report 21303128 (Version 1)
Quarter: 2022Q3

REPORT INFORMATION
  Report Type: Spontaneous
  Country: US (occurrence: None)
  Receive Date: 20220907
  Receipt Date: 20220907
  Transmission Date: 20221027
  Serious: Yes (Other)
  Sender: FDA-Public Use
  Company Number: None

PATIENT
  Age: 56 Year
  Sex: Female
  Weight: 79.2 kg

DRUGS (2)
  1. MONTELUKAST SODIUM [Suspect]
     Active Substance: MONTELUKAST SODIUM
     Indication: Asthma
     Dates: start: 20220831, end: 20220906
  2. Advair 50/500 [Concomitant]

REACTIONS (9)
  - Headache [None]
  - Abnormal dreams [None]
  - Insomnia [None]
  - Arthralgia [None]
  - Muscle spasms [None]
  - Diarrhoea [None]
  - Gastrointestinal pain [None]
  - Hyperhidrosis [None]
  - Nausea [None]

NARRATIVE: CASE EVENT DATE: 20220906
